FAERS Safety Report 12657465 (Version 2)
Quarter: 2016Q4

REPORT INFORMATION
  Report Type: Spontaneous
  Country: US (occurrence: US)
  Receive Date: 20160816
  Receipt Date: 20161004
  Transmission Date: 20170207
  Serious: Yes (Other)
  Sender: FDA-Public Use
  Company Number: US-TEVA-683536USA

PATIENT
  Sex: Male

DRUGS (1)
  1. COPAXONE [Suspect]
     Active Substance: GLATIRAMER ACETATE
     Indication: MULTIPLE SCLEROSIS
     Route: 058

REACTIONS (6)
  - Injection site haemorrhage [Not Recovered/Not Resolved]
  - Progressive relapsing multiple sclerosis [Not Recovered/Not Resolved]
  - Adverse event [Not Recovered/Not Resolved]
  - Central nervous system lesion [Not Recovered/Not Resolved]
  - Product use issue [Unknown]
  - Gastric cancer [Not Recovered/Not Resolved]
